FAERS Safety Report 8286559-5 (Version None)
Quarter: 2012Q2

REPORT INFORMATION
  Report Type: 
  Country: None (occurrence: None)
  Receive Date: 20120411
  Receipt Date: 20120402
  Transmission Date: 20120825
  Serious: Yes (Death)
  Sender: FDA-Public Use
  Company Number: DKLU1078054

PATIENT
  Age: 24 Month
  Sex: Male

DRUGS (8)
  1. VINCRISTINE [Suspect]
     Dosage: 0.065 MG/KG MILLIGRAM(S) / KILOGRAM, FREQUENCY NOT REPORTED
  2. CISPLATIN [Suspect]
     Dosage: 75 MG/M2 MILLIGRAM(S) / SQ. METER, FREQUENCY NOT REPORTED
  3. CYCLOPHOSPHAMIDE [Suspect]
     Dosage: 65 MG/M2 MILLIGRAM(S) / SQ. METER, FREQUENCY NOT REPORTED; 2200 MG/M2 MILLIGRAM(S)/SQ.METER, FREQUEN
  4. DOXORUBICIN HCL [Suspect]
     Dosage: 37.5 MG/M2 MILLIGRAM(S) / SQ. METER, FREQUENCY NOT REPORTED
  5. COSMEGEN [Suspect]
     Dosage: 1.5 MG/M2 MILLIGRAM(S) / SQ. METER, FREQUENCY NOT REPORTED
  6. ETOPOSIDE [Suspect]
     Dosage: 100 MG/M2 MILLIGRAM(S) /SQ.METER, FREQUENCY NOT REPORTED
  7. IFOSFAMIDE [Suspect]
     Dosage: 2.4 MG/M2 MILLIGRAM(S) / SQ. METER, FREQUENCY NOT REPORTED
  8. THERAPEUTIC RADIOPHARMACEUTICALS (THERAPEUTIC RADIOPHARMACEUTICALS) [Suspect]
     Dosage: FREQUENCY NOT REPORTED

REACTIONS (1)
  - DEATH [None]
